FAERS Safety Report 6184175-2 (Version None)
Quarter: 2009Q2

REPORT INFORMATION
  Report Type: 
  Country: None (occurrence: None)
  Receive Date: 20090506
  Receipt Date: 20090506
  Transmission Date: 20091009
  Serious: Yes (Other)
  Sender: FDA-Public Use
  Company Number: None

PATIENT
  Age: 32 Year
  Sex: Female
  Weight: 68.0396 kg

DRUGS (1)
  1. PROAIR HFA [Suspect]
     Indication: ASTHMA EXERCISE INDUCED
     Dosage: REGULAR 2XMTHS SINCE 2/09 PO
     Route: 048
     Dates: start: 20090201, end: 20090425

REACTIONS (14)
  - ASTHENIA [None]
  - ASTHMA [None]
  - CONDITION AGGRAVATED [None]
  - COUGH [None]
  - DRUG EFFECT DECREASED [None]
  - DRUG INEFFECTIVE [None]
  - DYSPHAGIA [None]
  - EAR PAIN [None]
  - INFLUENZA [None]
  - OROPHARYNGEAL PAIN [None]
  - PRODUCT QUALITY ISSUE [None]
  - PRODUCT SUBSTITUTION ISSUE [None]
  - QUALITY OF LIFE DECREASED [None]
  - THROAT IRRITATION [None]
